FAERS Safety Report 5394366-6 (Version None)
Quarter: 2007Q3

REPORT INFORMATION
  Report Type: 
  Country: None (occurrence: None)
  Receive Date: 20070723
  Receipt Date: 20070716
  Transmission Date: 20080115
  Serious: Yes (Hospitalization, Other)
  Sender: FDA-Public Use
  Company Number: PHBS2007GB11989

PATIENT
  Age: 7 Year
  Sex: Male

DRUGS (3)
  1. VOLTAREN T01907+SUPP [Suspect]
     Route: 054
  2. IBUPROFEN [Suspect]
     Dosage: 10 MG/KG, Q8H
  3. INDOMETHACIN [Suspect]
     Dosage: 25 MG, Q12H

REACTIONS (4)
  - BLOOD CREATININE INCREASED [None]
  - BLOOD UREA INCREASED [None]
  - DEHYDRATION [None]
  - PROCEDURAL VOMITING [None]
